FAERS Safety Report 8811907 (Version 1)
Quarter: 2012Q4

REPORT INFORMATION
  Report Type: Spontaneous
  Country: NL (occurrence: None)
  Receive Date: 20120924
  Receipt Date: 20120924
  Transmission Date: 20130627
  Serious: Yes (Other)
  Sender: FDA-Public Use
  Company Number: 2012HGS-003939

PATIENT
  Age: 16 Year

DRUGS (1)
  1. BENLYSTA [Suspect]
     Route: 041

REACTIONS (3)
  - Haemolysis [None]
  - Condition aggravated [None]
  - Off label use [None]
